FAERS Safety Report 21300780 (Version 3)
Quarter: 2022Q4

REPORT INFORMATION
  Report Type: Spontaneous
  Country: EG (occurrence: EG)
  Receive Date: 20220907
  Receipt Date: 20221004
  Transmission Date: 20230113
  Serious: Yes (Hospitalization, Other)
  Sender: FDA-Public Use
  Company Number: EG-NOVOPROD-953769

PATIENT
  Age: 53 Year
  Sex: Male

DRUGS (10)
  1. NOVORAPID [Suspect]
     Active Substance: INSULIN ASPART
     Indication: Diabetes mellitus
     Dosage: UNK
     Dates: start: 202205
  2. NOVORAPID [Suspect]
     Active Substance: INSULIN ASPART
     Dosage: TOTAL 27 IU, QD (10 IU-12 IU -05 IU )
  3. NOVORAPID [Suspect]
     Active Substance: INSULIN ASPART
     Dosage: 35 IU, QD (10U-20U-5U BEFORE EACH MEAL)
  4. LANTUS [Concomitant]
     Active Substance: INSULIN GLARGINE
     Indication: Diabetes mellitus
     Dosage: 25 IU PM
     Route: 058
  5. METFORMIN HYDROCHLORIDE\VILDAGLIPTIN [Concomitant]
     Active Substance: METFORMIN HYDROCHLORIDE\VILDAGLIPTIN
     Indication: Diabetes mellitus
     Dosage: END DATE WAS FROM A MONTH AGO WITH DOSE IS 2 TAB/DAY
     Route: 048
     Dates: start: 202205
  6. JANUMET [Concomitant]
     Active Substance: METFORMIN HYDROCHLORIDE\SITAGLIPTIN PHOSPHATE
     Indication: Product used for unknown indication
     Dosage: STARTED FROM A MONTH AGO WITH DOSE 2 TAB/DAY
     Route: 048
  7. PLAVIX [Concomitant]
     Active Substance: CLOPIDOGREL BISULFATE
     Indication: Hyperlipidaemia
     Dosage: 1 TAB/DAY
     Dates: start: 202205
  8. CRESTOR [Concomitant]
     Active Substance: ROSUVASTATIN CALCIUM
     Indication: Hyperlipidaemia
     Dosage: 20 MG 1 TAB/DAY
     Dates: start: 202205
  9. NAFRONYL [Concomitant]
     Active Substance: NAFRONYL
     Indication: Anticoagulant therapy
     Dosage: 200 MG 2 TAB/DAY
  10. CILOSTAZOL [Concomitant]
     Active Substance: CILOSTAZOL
     Indication: Anticoagulant therapy
     Dosage: 100 MG 2 TAB/DAY

REACTIONS (2)
  - Diabetic foot [Unknown]
  - Hyperglycaemia [Not Recovered/Not Resolved]

NARRATIVE: CASE EVENT DATE: 20220501
